FAERS Safety Report 5039241-1 (Version None)
Quarter: 2006Q2

REPORT INFORMATION
  Report Type: 
  Country: None (occurrence: None)
  Receive Date: 20060623
  Receipt Date: 20060619
  Transmission Date: 20061013
  Serious: Yes (Disabling, Other)
  Sender: FDA-Public Use
  Company Number: HQWYE395818MAY06

PATIENT
  Age: 42 Year
  Sex: Female
  Weight: 113.5 kg

DRUGS (4)
  1. EFFEXOR XR [Suspect]
     Indication: DEPRESSION
     Dosage: SEE IMAGE
     Route: 048
     Dates: start: 19970611, end: 20060530
  2. EFFEXOR XR [Suspect]
     Indication: DEPRESSION
     Dosage: SEE IMAGE
     Route: 048
     Dates: start: 20060531
  3. WELLBUTRIN XL [Suspect]
     Dosage: 300 MG 1X PER 1 DAY
  4. PAIN MEDICATION (PAIN MEDICATION) [Concomitant]

REACTIONS (2)
  - PULMONARY HYPERTENSION [None]
  - WEIGHT INCREASED [None]
